FAERS Safety Report 9702058 (Version 1)
Quarter: 2013Q4

REPORT INFORMATION
  Report Type: Spontaneous
  Country: US (occurrence: None)
  Receive Date: 20131119
  Receipt Date: 20131119
  Transmission Date: 20140711
  Serious: Yes (Life-Threatening, Hospitalization)
  Sender: FDA-Public Use
  Company Number: 2013P1021022

PATIENT
  Age: 31 Year
  Sex: Male

DRUGS (1)
  1. BUPROPION [Suspect]

REACTIONS (15)
  - Confusional state [None]
  - Sinus tachycardia [None]
  - Electrocardiogram QRS complex prolonged [None]
  - Electrocardiogram QT prolonged [None]
  - Grand mal convulsion [None]
  - Lethargy [None]
  - Hypotension [None]
  - Atrial fibrillation [None]
  - Ventricular extrasystoles [None]
  - Aspiration [None]
  - Overdose [None]
  - Cardiotoxicity [None]
  - Shock [None]
  - Myocardial ischaemia [None]
  - Pupil fixed [None]
